FAERS Safety Report 13141195 (Version 1)
Quarter: 2017Q1

REPORT INFORMATION
  Report Type: Spontaneous
  Country: US (occurrence: US)
  Receive Date: 20170123
  Receipt Date: 20170123
  Transmission Date: 20170428
  Serious: Yes (Hospitalization)
  Sender: FDA-Public Use
  Company Number: US-MYLANLABS-2017M1001794

PATIENT

DRUGS (4)
  1. CLOZAPINE. [Suspect]
     Active Substance: CLOZAPINE
     Dosage: 250 MG, BID
  2. CLOZAPINE. [Suspect]
     Active Substance: CLOZAPINE
     Indication: IRRITABILITY
     Dosage: 25 MG, QD
  3. CLOZAPINE. [Suspect]
     Active Substance: CLOZAPINE
     Dosage: 100 MG, BID
  4. CLOZAPINE. [Suspect]
     Active Substance: CLOZAPINE
     Dosage: 300 MG, BID

REACTIONS (4)
  - Increased appetite [Unknown]
  - Aggression [Recovered/Resolved]
  - Weight decreased [Unknown]
  - Product use issue [Unknown]
